FAERS Safety Report 11152894 (Version 1)
Quarter: 2015Q2

REPORT INFORMATION
  Report Type: Spontaneous
  Country: FR (occurrence: FR)
  Receive Date: 20150601
  Receipt Date: 20150601
  Transmission Date: 20150821
  Serious: Yes (Hospitalization)
  Sender: FDA-Public Use
  Company Number: FR-BAYER-2015-262926

PATIENT
  Age: 53 Year
  Sex: Male

DRUGS (2)
  1. STIVARGA [Suspect]
     Active Substance: REGORAFENIB
     Dosage: 2 TABLETS PER DAY
     Route: 048
     Dates: start: 20150216, end: 20150413
  2. STIVARGA [Suspect]
     Active Substance: REGORAFENIB
     Dosage: 3 TABLETS PER DAY
     Route: 048
     Dates: start: 20150119, end: 20150130

REACTIONS (5)
  - Asthenia [Recovering/Resolving]
  - Decreased appetite [Recovering/Resolving]
  - Retinal detachment [Recovering/Resolving]
  - Myalgia [None]
  - Palmar-plantar erythrodysaesthesia syndrome [Recovering/Resolving]

NARRATIVE: CASE EVENT DATE: 20150126
